FAERS Safety Report 19928106 (Version 1)
Quarter: 2021Q4

REPORT INFORMATION
  Report Type: Spontaneous
  Country: US (occurrence: US)
  Receive Date: 20211006
  Receipt Date: 20211006
  Transmission Date: 20220303
  Serious: No
  Sender: FDA-Public Use
  Company Number: None

PATIENT
  Age: 47 Year
  Sex: Male
  Weight: 76.5 kg

DRUGS (1)
  1. TINACTIN [Suspect]
     Active Substance: TOLNAFTATE
     Indication: Fungal infection
     Route: 061

REACTIONS (4)
  - Erythema [None]
  - Pruritus [None]
  - Recalled product administered [None]
  - Application site reaction [None]

NARRATIVE: CASE EVENT DATE: 20210901
